FAERS Safety Report 25113713 (Version 1)
Quarter: 2025Q1

REPORT INFORMATION
  Report Type: Spontaneous
  Country: US (occurrence: US)
  Receive Date: 20250324
  Receipt Date: 20250324
  Transmission Date: 20250408
  Serious: No
  Sender: AMARIN
  Company Number: US-Amarin Pharma  Inc-2025AMR000042

PATIENT
  Age: 73 Year
  Sex: Male

DRUGS (4)
  1. VASCEPA [Suspect]
     Active Substance: ICOSAPENT ETHYL
     Indication: Cardiac disorder
     Dates: start: 2015
  2. VASCEPA [Suspect]
     Active Substance: ICOSAPENT ETHYL
     Indication: Blood cholesterol increased
  3. VASCEPA [Suspect]
     Active Substance: ICOSAPENT ETHYL
  4. VASCEPA [Suspect]
     Active Substance: ICOSAPENT ETHYL

REACTIONS (4)
  - Cognitive disorder [Unknown]
  - Visual impairment [Unknown]
  - Parosmia [Unknown]
  - Product physical issue [Unknown]

NARRATIVE: CASE EVENT DATE: 20250126
